FAERS Safety Report 11312193 (Version 1)
Quarter: 2015Q3

REPORT INFORMATION
  Report Type: Spontaneous
  Country: NO (occurrence: NO)
  Receive Date: 20150727
  Receipt Date: 20150727
  Transmission Date: 20151125
  Serious: Yes (Death, Life-Threatening, Hospitalization, Other)
  Sender: FDA-Public Use
  Company Number: NO-TEVA-579565ISR

PATIENT
  Age: 70 Year
  Sex: Female

DRUGS (7)
  1. KLEXANE [Concomitant]
     Active Substance: ENOXAPARIN
     Indication: THROMBOSIS PROPHYLAXIS
     Dosage: 40 MILLIGRAM DAILY; 40 MG, 1X/DAY
     Route: 058
     Dates: start: 20141007
  2. ENALAPRIL [Concomitant]
     Active Substance: ENALAPRIL
     Indication: HYPERTENSION
     Dosage: 5 MILLIGRAM DAILY; 2.5 MG, 2X/DAY
     Route: 048
     Dates: start: 20120206
  3. NORVASC [Concomitant]
     Active Substance: AMLODIPINE BESYLATE
     Indication: HYPERTENSION
     Dosage: 5 MILLIGRAM DAILY; 5 MG, 1X/DAY
     Route: 048
  4. ASASANTIN RETARD [Concomitant]
     Active Substance: ASPIRIN\DIPYRIDAMOLE
     Indication: THROMBOSIS PROPHYLAXIS
     Dosage: 2 DOSAGE FORMS DAILY; 1 DF, 2X/DAY
     Route: 048
     Dates: start: 20111221
  5. METHOTREXATE SODIUM. [Suspect]
     Active Substance: METHOTREXATE SODIUM
     Dosage: 20 MILLIGRAM DAILY; 20 MG ONCE DAILY, BY MISTAKE FOR TWO DAYS
     Route: 048
     Dates: start: 20141012, end: 20141014
  6. PARACETAMOL [Concomitant]
     Active Substance: ACETAMINOPHEN
     Indication: PAIN
     Dosage: 4 GRAM DAILY; 1 G, 4X/DAY
     Route: 048
     Dates: start: 20141007
  7. CEFOTAXIME [Concomitant]
     Active Substance: CEFOTAXIME SODIUM
     Indication: INFECTION
     Dosage: 3 GRAM DAILY; 1 G, 3X/DAY
     Route: 042
     Dates: start: 20141007, end: 20141024

REACTIONS (11)
  - Respiratory distress [Recovered/Resolved]
  - Mucosal haemorrhage [Unknown]
  - Thrombocytopenia [Recovered/Resolved]
  - Wrong drug administered [Recovering/Resolving]
  - Sepsis [Recovering/Resolving]
  - Device related infection [Recovering/Resolving]
  - Mouth ulceration [Recovering/Resolving]
  - Neutropenia [Recovered/Resolved]
  - Device related infection [Unknown]
  - Death [Fatal]
  - Stomatitis [Recovering/Resolving]

NARRATIVE: CASE EVENT DATE: 201410
